FAERS Safety Report 7543828-1 (Version None)
Quarter: 2011Q2

REPORT INFORMATION
  Report Type: 
  Country: None (occurrence: None)
  Receive Date: 20110613
  Receipt Date: 20110608
  Transmission Date: 20111010
  Serious: Yes (Other)
  Sender: FDA-Public Use
  Company Number: US-ABBOTT-08P-163-0472695-00

PATIENT
  Sex: Female
  Weight: 128.48 kg

DRUGS (7)
  1. NEXIUM [Concomitant]
     Indication: PRODUCT USED FOR UNKNOWN INDICATION
  2. LIPITOR [Concomitant]
     Indication: PRODUCT USED FOR UNKNOWN INDICATION
  3. LUPRON DEPOT [Suspect]
     Indication: PELVIC PAIN
     Route: 030
     Dates: start: 20060201, end: 20080401
  4. LUPRON DEPOT [Suspect]
     Indication: OVARIAN CYST
  5. LEXAPRO [Concomitant]
     Indication: PRODUCT USED FOR UNKNOWN INDICATION
     Route: 048
  6. PREMPRO [Concomitant]
     Indication: PRODUCT USED FOR UNKNOWN INDICATION
     Dates: end: 20060101
  7. PROTONIX [Concomitant]
     Indication: PRODUCT USED FOR UNKNOWN INDICATION

REACTIONS (19)
  - HYPOTHYROIDISM [None]
  - HOT FLUSH [None]
  - ARTHRALGIA [None]
  - RASH [None]
  - BLINDNESS UNILATERAL [None]
  - HYPERHIDROSIS [None]
  - LOSS OF LIBIDO [None]
  - MIGRAINE [None]
  - OPTIC NEURITIS [None]
  - VULVOVAGINAL DRYNESS [None]
  - OEDEMA PERIPHERAL [None]
  - BONE PAIN [None]
  - UNEVALUABLE EVENT [None]
  - SYSTEMIC LUPUS ERYTHEMATOSUS [None]
  - PYREXIA [None]
  - MALAISE [None]
  - WEIGHT INCREASED [None]
  - VITAMIN D DECREASED [None]
  - AMNESIA [None]
